FAERS Safety Report 7767094-7 (Version None)
Quarter: 2011Q3

REPORT INFORMATION
  Report Type: 
  Country: None (occurrence: None)
  Receive Date: 20110922
  Receipt Date: 20110630
  Transmission Date: 20111222
  Serious: No
  Sender: FDA-Public Use
  Company Number: US-ASTRAZENECA-2011SE39401

PATIENT
  Age: 52 Year
  Sex: Female
  Weight: 114.3 kg

DRUGS (6)
  1. SYNTHROID [Concomitant]
  2. LOSARTAN POTASSIUM [Concomitant]
     Indication: BLOOD PRESSURE
  3. KLONOPIN [Concomitant]
  4. EFFEXOR XR [Concomitant]
  5. SEROQUEL [Suspect]
     Indication: BIPOLAR DISORDER
     Route: 048
  6. SEROQUEL [Suspect]
     Route: 048

REACTIONS (3)
  - THERAPEUTIC RESPONSE DELAYED [None]
  - FEELING DRUNK [None]
  - DRUG INEFFECTIVE [None]
